FAERS Safety Report 17326529 (Version 1)
Quarter: 2020Q1

REPORT INFORMATION
  Report Type: Spontaneous
  Country: FR (occurrence: FR)
  Receive Date: 20200127
  Receipt Date: 20200127
  Transmission Date: 20200409
  Serious: Yes (Other)
  Sender: FDA-Public Use
  Company Number: FR-009507513-2001FRA007233

PATIENT
  Age: 75 Year
  Sex: Male
  Weight: 60 kg

DRUGS (2)
  1. FLUCONAZOLE. [Suspect]
     Active Substance: FLUCONAZOLE
     Indication: OESOPHAGEAL CANDIDIASIS
     Dosage: 400 MILLIGRAM, QD (SOLUTION FOR INFUSION)
     Route: 041
     Dates: start: 20191218, end: 20191221
  2. INVANZ [Suspect]
     Active Substance: ERTAPENEM SODIUM
     Indication: LUNG DISORDER
     Dosage: 1 GRAM, QD
     Route: 058
     Dates: start: 20191214, end: 20191223

REACTIONS (2)
  - Seizure [Recovered/Resolved]
  - Confusional state [Recovered/Resolved]

NARRATIVE: CASE EVENT DATE: 20191222
